FAERS Safety Report 11926694 (Version 1)
Quarter: 2016Q1

REPORT INFORMATION
  Report Type: Spontaneous
  Country: US (occurrence: None)
  Receive Date: 20160115
  Receipt Date: 20160115
  Transmission Date: 20160526
  Serious: Yes (Other)
  Sender: FDA-Public Use
  Company Number: None

PATIENT
  Age: 19 Year
  Sex: Male
  Weight: 77.11 kg

DRUGS (5)
  1. DEPAKOTE [Concomitant]
     Active Substance: DIVALPROEX SODIUM
  2. OLANZAPINE. [Concomitant]
     Active Substance: OLANZAPINE
  3. PROZAC [Suspect]
     Active Substance: FLUOXETINE HYDROCHLORIDE
     Indication: SCHIZOAFFECTIVE DISORDER
     Dosage: 1
     Route: 048
     Dates: start: 20101201, end: 20151210
  4. PROZAC [Suspect]
     Active Substance: FLUOXETINE HYDROCHLORIDE
     Indication: DEPRESSION
     Dosage: 1
     Route: 048
     Dates: start: 20101201, end: 20151210
  5. INVEGA [Concomitant]
     Active Substance: PALIPERIDONE

REACTIONS (7)
  - Anxiety [None]
  - Feeling abnormal [None]
  - Mood swings [None]
  - Agitation [None]
  - Anger [None]
  - Depression [None]
  - Impaired work ability [None]

NARRATIVE: CASE EVENT DATE: 20160113
